FAERS Safety Report 9826626 (Version 1)
Quarter: 2013Q4

REPORT INFORMATION
  Report Type: Spontaneous
  Country: US (occurrence: None)
  Receive Date: 20131120
  Receipt Date: 20131120
  Transmission Date: 20140711
  Serious: Yes (Other)
  Sender: FDA-Public Use
  Company Number: 1000044743

PATIENT
  Age: 71 Year
  Sex: Female

DRUGS (5)
  1. VIIBRYD (VILAZODONE HYDROCHLORIDE) (10 MILLIGRAM, TABLETS) [Suspect]
     Indication: DEPRESSION
     Dosage: 10 MG, 1 IN 1 D
     Route: 048
     Dates: start: 20130420
  2. LEXAPRO (ESCITALOPRAM OXALATE) (10 MILLIGRAM, TABLETS) [Suspect]
     Dosage: (10 MG, 1 IN 1 D)
     Route: 048
  3. ALPRAZOLAM (ALPRAZOLAM) (ALPRAZOLAM) [Concomitant]
  4. LISINOPRIL (LISINOPRIL) (LISINOPRIL) [Concomitant]
  5. AMLODIPINE (AMLODIPINE) (AMLODIPINE) [Concomitant]

REACTIONS (2)
  - Insomnia [None]
  - Hot flush [None]
